FAERS Safety Report 11329477 (Version 1)
Quarter: 2015Q3

REPORT INFORMATION
  Report Type: Spontaneous
  Country: CN (occurrence: None)
  Receive Date: 20150730
  Receipt Date: 20150730
  Transmission Date: 20151125
  Serious: Yes (Other)
  Sender: FDA-Public Use
  Company Number: CN-2015VAL000487

PATIENT
  Age: 50 Year
  Sex: Female

DRUGS (4)
  1. ROCALTROL [Suspect]
     Active Substance: CALCITRIOL
     Indication: MINERAL SUPPLEMENTATION
     Dosage: BEFORE SLEEP (0.25 MCG, 1 IN 1 D), ORAL
     Route: 048
  2. MEROPENEM (MEROPENEM) [Suspect]
     Active Substance: MEROPENEM
     Indication: PYELONEPHRITIS ACUTE
     Route: 042
  3. ALPROSTADIL. [Concomitant]
     Active Substance: ALPROSTADIL
  4. COATED ALDEHYDE OXYSTARCH [Concomitant]

REACTIONS (1)
  - Drug-induced liver injury [None]
